FAERS Safety Report 8781983 (Version 3)
Quarter: 2014Q2

REPORT INFORMATION
  Report Type: Spontaneous
  Country: US (occurrence: US)
  Receive Date: 20120913
  Receipt Date: 20140507
  Transmission Date: 20141212
  Serious: Yes (Hospitalization)
  Sender: FDA-Public Use
  Company Number: US-BAYER-2012-094610

PATIENT
  Age: 32 Year
  Sex: Female
  Weight: 56.69 kg

DRUGS (7)
  1. YAZ [Suspect]
     Dosage: UNK
     Dates: start: 20070301, end: 200705
  2. YASMIN [Suspect]
     Dosage: UNK
     Dates: start: 20070301, end: 20070601
  3. SULFAMETHOXAZOLE/TRIMETHOPRIM [Concomitant]
     Dosage: 800-160 MG
     Route: 048
     Dates: start: 20071017
  4. LEXAPRO [Concomitant]
     Dosage: 10 MG
     Route: 048
     Dates: start: 20071017
  5. PROMETHAZIN [Concomitant]
     Dosage: 25 MG, UNK
     Route: 048
     Dates: start: 20071021
  6. PRENATAL [Concomitant]
     Dosage: UNK
     Route: 048
     Dates: start: 20071031
  7. PRILOSEC [Concomitant]

REACTIONS (10)
  - Cholecystectomy [None]
  - Cholecystitis acute [None]
  - Pain [None]
  - Injury [None]
  - Dyspepsia [None]
  - General physical health deterioration [None]
  - Anxiety [None]
  - Anhedonia [None]
  - Emotional distress [None]
  - Pain [None]
